FAERS Safety Report 12493082 (Version 1)
Quarter: 2016Q2

REPORT INFORMATION
  Report Type: Spontaneous
  Country: US (occurrence: US)
  Receive Date: 20160623
  Receipt Date: 20160623
  Transmission Date: 20160815
  Serious: Yes (Hospitalization)
  Sender: FDA-Public Use
  Company Number: US-PFIZER INC-3226222

PATIENT
  Age: 35 Year
  Sex: Female

DRUGS (4)
  1. PREDNISONE. [Suspect]
     Active Substance: PREDNISONE
     Dosage: UNK
  2. FUROSEMIDE. [Suspect]
     Active Substance: FUROSEMIDE
     Indication: HEART RATE INCREASED
     Dosage: 40 MG, FREQ: 2 DAY; INTERVAL: 1
     Route: 042
  3. FUROSEMIDE. [Suspect]
     Active Substance: FUROSEMIDE
     Dosage: 40 MG, 2X/DAY
  4. PREDNISONE. [Suspect]
     Active Substance: PREDNISONE
     Indication: HEART RATE INCREASED
     Route: 042

REACTIONS (3)
  - Supraventricular extrasystoles [Unknown]
  - Hypokalaemia [Unknown]
  - Supraventricular tachycardia [Unknown]
